FAERS Safety Report 12471315 (Version 1)
Quarter: 2016Q2

REPORT INFORMATION
  Report Type: Spontaneous
  Country: US (occurrence: US)
  Receive Date: 20160616
  Receipt Date: 20160616
  Transmission Date: 20160815
  Serious: No
  Sender: FDA-Public Use
  Company Number: US-PFIZER INC-2016283948

PATIENT
  Age: 83 Year
  Sex: Female

DRUGS (7)
  1. CODEINE [Suspect]
     Active Substance: CODEINE
  2. CAFFEINE. [Suspect]
     Active Substance: CAFFEINE
  3. AMOXICILLIN. [Suspect]
     Active Substance: AMOXICILLIN
  4. HISTAMINE PHOSPHATE [Suspect]
     Active Substance: HISTAMINE PHOSPHATE
  5. PREDNISONE. [Suspect]
     Active Substance: PREDNISONE
  6. ETHYL ALCOHOL [Suspect]
     Active Substance: ALCOHOL
  7. CORTISONE [Suspect]
     Active Substance: CORTISONE\HYDROCORTISONE

REACTIONS (1)
  - Drug hypersensitivity [Unknown]
